FAERS Safety Report 9095765 (Version 1)
Quarter: 2013Q1

REPORT INFORMATION
  Report Type: Spontaneous
  Country: DE (occurrence: None)
  Receive Date: 20130124
  Receipt Date: 20130124
  Transmission Date: 20140127
  Serious: Yes (Other)
  Sender: FDA-Public Use
  Company Number: 2013VX000230

PATIENT
  Sex: 0

DRUGS (1)
  1. TOLCAPONE [Suspect]
     Indication: PARKINSON^S DISEASE
     Route: 048
     Dates: start: 20110715, end: 20121203

REACTIONS (5)
  - Aspartate aminotransferase increased [None]
  - Alanine aminotransferase increased [None]
  - Blood alkaline phosphatase increased [None]
  - Blood bilirubin increased [None]
  - Gamma-glutamyltransferase increased [None]
